FAERS Safety Report 13744341 (Version 5)
Quarter: 2021Q1

REPORT INFORMATION
  Report Type: Spontaneous
  Country: NL (occurrence: NL)
  Receive Date: 20170712
  Receipt Date: 20210310
  Transmission Date: 20210419
  Serious: Yes (Other)
  Sender: FDA-Public Use
  Company Number: PHHY2017NL098732

PATIENT
  Sex: Male

DRUGS (8)
  1. ACETAMINOPHEN (PARACETAMOL) [Interacting]
     Active Substance: ACETAMINOPHEN
     Indication: LIMB INJURY
     Dosage: UNK
     Route: 065
  2. LYRICA [Interacting]
     Active Substance: PREGABALIN
     Indication: NERVE INJURY
  3. AMITRIPTYLINE [Interacting]
     Active Substance: AMITRIPTYLINE
     Indication: LIMB INJURY
     Dosage: UNK
     Route: 065
  4. PREDNISONE. [Interacting]
     Active Substance: PREDNISONE
     Indication: LIMB INJURY
  5. AMITRIPTYLINE [Interacting]
     Active Substance: AMITRIPTYLINE
     Indication: NERVE INJURY
  6. ACETAMINOPHEN (PARACETAMOL) [Interacting]
     Active Substance: ACETAMINOPHEN
     Indication: NERVE INJURY
  7. PREDNISONE. [Suspect]
     Active Substance: PREDNISONE
     Indication: NERVE INJURY
     Dosage: UNK
     Route: 065
  8. LYRICA [Interacting]
     Active Substance: PREGABALIN
     Indication: LIMB INJURY
     Dosage: UNK
     Route: 065

REACTIONS (8)
  - Eye disorder [Unknown]
  - Colour blindness acquired [Not Recovered/Not Resolved]
  - Blindness transient [Recovered/Resolved]
  - Visual impairment [Not Recovered/Not Resolved]
  - Eye irritation [Unknown]
  - Astigmatism [Not Recovered/Not Resolved]
  - Vision blurred [Unknown]
  - Drug interaction [Unknown]
